FAERS Safety Report 23152802 (Version 2)
Quarter: 2024Q2

REPORT INFORMATION
  Report Type: Report from Study
  Country: CA (occurrence: CA)
  Receive Date: 20231107
  Receipt Date: 20240424
  Transmission Date: 20240716
  Serious: Yes (Other)
  Sender: FDA-Public Use
  Company Number: CA-JNJFOC-20230955100

PATIENT
  Age: 14 Year
  Sex: Male
  Weight: 119 kg

DRUGS (3)
  1. REMICADE [Suspect]
     Active Substance: INFLIXIMAB
     Indication: Crohn^s disease
     Dosage: PATIENT RECEIVED INFUSION ON 22-SEP-2023.?EXPIRY DATE: 01-MAR-2026?ON 03-NOV-2023 RECEIVED 28TH INFL
     Route: 041
     Dates: start: 20200707
  2. REMICADE [Suspect]
     Active Substance: INFLIXIMAB
     Route: 041
  3. TYLENOL WITH CODEINE [Concomitant]
     Active Substance: ACETAMINOPHEN\CODEINE PHOSPHATE
     Indication: Product used for unknown indication
     Route: 065

REACTIONS (4)
  - Wisdom teeth removal [Recovered/Resolved]
  - Abdominal pain [Unknown]
  - Diarrhoea [Unknown]
  - Off label use [Unknown]

NARRATIVE: CASE EVENT DATE: 20200707
